FAERS Safety Report 8577259-2 (Version None)
Quarter: 2012Q3

REPORT INFORMATION
  Report Type: 
  Country: None (occurrence: None)
  Receive Date: 20120807
  Receipt Date: 20120801
  Transmission Date: 20120928
  Serious: No
  Sender: FDA-Public Use
  Company Number: US-PFIZER INC-2012187733

PATIENT
  Age: 72 Year
  Sex: Female
  Weight: 74.83 kg

DRUGS (7)
  1. LOVASTATIN [Concomitant]
     Indication: BLOOD CHOLESTEROL INCREASED
     Dosage: 40 MG, 1X/DAY
  2. SERTRALINE HYDROCHLORIDE [Concomitant]
     Indication: ANXIETY
     Dosage: 100 MG, 1X/DAY
  3. TOLTERODINE TARTRATE [Suspect]
     Dosage: 2 MG, 1X/DAY
     Dates: start: 20120701, end: 20120730
  4. ATENOLOL [Concomitant]
     Indication: HYPERTENSION
     Dosage: 100 MG, 1X/DAY
  5. DETROL LA [Suspect]
     Indication: UTERINE PROLAPSE
  6. DETROL LA [Suspect]
     Indication: BLADDER PROLAPSE
     Dosage: 4 MG, 1X/DAY
     Route: 048
     Dates: start: 20120601, end: 20120730
  7. ALPRAZOLAM [Concomitant]
     Indication: ANXIETY
     Dosage: 0.5 MG, 1X/DAY

REACTIONS (6)
  - ABDOMINAL PAIN UPPER [None]
  - DYSPHAGIA [None]
  - DRY MOUTH [None]
  - MIDDLE INSOMNIA [None]
  - DRUG INEFFECTIVE [None]
  - CONSTIPATION [None]
